FAERS Safety Report 12328241 (Version 2)
Quarter: 2016Q2

REPORT INFORMATION
  Report Type: Report from Study
  Country: US (occurrence: US)
  Receive Date: 20160503
  Receipt Date: 20160510
  Transmission Date: 20160815
  Serious: Yes (Hospitalization)
  Sender: FDA-Public Use
  Company Number: US-CELGENEUS-USA-2016047649

PATIENT
  Age: 43 Year
  Sex: Female
  Weight: 64.47 kg

DRUGS (55)
  1. ABRAXANE [Suspect]
     Active Substance: PACLITAXEL
     Indication: NON-SMALL CELL LUNG CANCER
     Route: 041
     Dates: start: 20160406
  2. BUPROPION XL [Concomitant]
     Active Substance: BUPROPION
     Indication: PRODUCT USED FOR UNKNOWN INDICATION
     Route: 048
     Dates: start: 201603
  3. OXYCONTIN [Concomitant]
     Active Substance: OXYCODONE HYDROCHLORIDE
     Indication: PRODUCT USED FOR UNKNOWN INDICATION
     Dosage: 1200 MILLIGRAM
     Route: 065
     Dates: start: 20160320
  4. PROMETHAZINE/CODEINE [Concomitant]
     Active Substance: CODEINE\PROMETHAZINE
     Indication: COUGH
     Dosage: 25/40 MG
     Route: 048
     Dates: start: 20160318
  5. ALBUTEROL. [Concomitant]
     Active Substance: ALBUTEROL
     Indication: WHEEZING
     Dosage: 300 MILLIGRAM
     Route: 055
     Dates: start: 201603
  6. PERFLUTREN [Concomitant]
     Active Substance: PERFLUTREN
     Indication: PRODUCT USED FOR UNKNOWN INDICATION
     Dosage: 360 MICROGRAM
     Route: 065
     Dates: start: 20160404, end: 20160404
  7. MOTRIN [Concomitant]
     Active Substance: IBUPROFEN
     Indication: PYREXIA
  8. PRILOSEC [Concomitant]
     Active Substance: OMEPRAZOLE MAGNESIUM
     Indication: PRODUCT USED FOR UNKNOWN INDICATION
     Route: 048
     Dates: start: 201603
  9. PROMETHAZINE/CODEINE [Concomitant]
     Active Substance: CODEINE\PROMETHAZINE
     Dosage: 60 MILLIGRAM
     Route: 048
     Dates: start: 20160318
  10. LASIX [Concomitant]
     Active Substance: FUROSEMIDE
     Route: 048
  11. CLARITIN [Concomitant]
     Active Substance: LORATADINE
     Indication: PRODUCT USED FOR UNKNOWN INDICATION
     Dosage: 1600 MILLIGRAM
     Route: 065
  12. PANTOPRAZOLE [Concomitant]
     Active Substance: PANTOPRAZOLE SODIUM
     Indication: PRODUCT USED FOR UNKNOWN INDICATION
     Route: 065
  13. PERFLUTREN LIPID MICROSPHERE [Concomitant]
     Indication: PRODUCT USED FOR UNKNOWN INDICATION
     Dosage: 0.1 - 1ML
     Route: 041
  14. CARBOPLATIN. [Suspect]
     Active Substance: CARBOPLATIN
     Indication: NON-SMALL CELL LUNG CANCER
     Dosage: DOSAGE FORM 150 ML NACL
     Route: 041
     Dates: start: 20160406, end: 20160427
  15. TESSALON [Concomitant]
     Active Substance: BENZONATATE
     Dosage: 2000 MILLIGRAM
     Route: 048
  16. TESSALON [Concomitant]
     Active Substance: BENZONATATE
     Route: 048
  17. OXYCODONE [Concomitant]
     Active Substance: OXYCODONE
     Route: 048
  18. PIPERACILLIN/TAZOBACTAM [Concomitant]
     Active Substance: PIPERACILLIN SODIUM\TAZOBACTAM SODIUM
     Indication: PRODUCT USED FOR UNKNOWN INDICATION
     Route: 065
     Dates: start: 20160424
  19. PIPERACILLIN/TAZOBACTAM [Concomitant]
     Active Substance: PIPERACILLIN SODIUM\TAZOBACTAM SODIUM
     Route: 041
     Dates: start: 20160424
  20. VENOFER [Concomitant]
     Active Substance: IRON SUCROSE
     Indication: PRODUCT USED FOR UNKNOWN INDICATION
     Route: 041
     Dates: start: 20160408, end: 20160408
  21. MOTRIN [Concomitant]
     Active Substance: IBUPROFEN
     Indication: PAIN
     Route: 048
  22. MORPHINE [Concomitant]
     Active Substance: MORPHINE
     Indication: PRODUCT USED FOR UNKNOWN INDICATION
     Dosage: 6 MILLIGRAM
     Route: 041
  23. OXYCODONE [Concomitant]
     Active Substance: OXYCODONE
     Route: 048
  24. OXYCODONE [Concomitant]
     Active Substance: OXYCODONE
     Route: 048
  25. REGLAN [Concomitant]
     Active Substance: METOCLOPRAMIDE HYDROCHLORIDE
     Indication: NAUSEA
     Route: 065
     Dates: start: 20160420
  26. PACKED RED BLOOD CELLS [Concomitant]
     Active Substance: HUMAN RED BLOOD CELL
     Indication: PRODUCT USED FOR UNKNOWN INDICATION
     Route: 041
     Dates: start: 20160424, end: 20160424
  27. KLONOPIN [Concomitant]
     Active Substance: CLONAZEPAM
     Indication: PRODUCT USED FOR UNKNOWN INDICATION
     Route: 048
     Dates: start: 201602
  28. TESSALON [Concomitant]
     Active Substance: BENZONATATE
     Indication: COUGH
     Route: 048
     Dates: start: 201603
  29. OXYCODONE [Concomitant]
     Active Substance: OXYCODONE
     Route: 048
  30. BACTRIM DS [Concomitant]
     Active Substance: SULFAMETHOXAZOLE\TRIMETHOPRIM
     Indication: PRODUCT USED FOR UNKNOWN INDICATION
     Dosage: 5 LITERS
     Route: 048
     Dates: start: 20160406
  31. REGLAN [Concomitant]
     Active Substance: METOCLOPRAMIDE HYDROCHLORIDE
     Indication: CONSTIPATION
     Route: 048
  32. DOCUSATE SODIUM. [Concomitant]
     Active Substance: DOCUSATE SODIUM
     Indication: PRODUCT USED FOR UNKNOWN INDICATION
     Dosage: 12.5 MILLIGRAM
     Route: 065
     Dates: start: 20160413
  33. CODEINE [Concomitant]
     Active Substance: CODEINE
     Indication: PAIN
     Route: 048
  34. NICODERM CQ [Concomitant]
     Active Substance: NICOTINE
     Indication: PRODUCT USED FOR UNKNOWN INDICATION
     Route: 062
  35. PROMETHAZINE/DEXTROMETHORPHAN [Concomitant]
     Indication: PRODUCT USED FOR UNKNOWN INDICATION
     Route: 048
  36. POTASSIUM [Concomitant]
     Active Substance: POTASSIUM
     Indication: PRODUCT USED FOR UNKNOWN INDICATION
     Route: 065
  37. LASIX [Concomitant]
     Active Substance: FUROSEMIDE
     Indication: PRODUCT USED FOR UNKNOWN INDICATION
     Dosage: 20 MILLIGRAM
     Route: 048
     Dates: start: 20160330
  38. RT [Concomitant]
     Indication: PRODUCT USED FOR UNKNOWN INDICATION
     Dosage: 30 MILLIGRAM
     Route: 065
     Dates: start: 20160330
  39. OXYCODONE [Concomitant]
     Active Substance: OXYCODONE
     Indication: PAIN
     Route: 048
     Dates: start: 20160406
  40. MAG OXIDE [Concomitant]
     Active Substance: MAGNESIUM OXIDE
     Indication: PRODUCT USED FOR UNKNOWN INDICATION
     Route: 065
     Dates: start: 20160421
  41. GUMMIES CHILDREN MULTIVITAMINS [Concomitant]
     Indication: PRODUCT USED FOR UNKNOWN INDICATION
     Dosage: 9 MILLILITER
     Route: 048
  42. SODIUM CHLORIDE. [Concomitant]
     Active Substance: SODIUM CHLORIDE
     Route: 041
  43. SODIUM CHLORIDE. [Concomitant]
     Active Substance: SODIUM CHLORIDE
     Dosage: 10 MILLIGRAM
     Route: 065
  44. BREO ELLIPTA [Concomitant]
     Active Substance: FLUTICASONE FUROATE\VILANTEROL TRIFENATATE
     Indication: PRODUCT USED FOR UNKNOWN INDICATION
     Dosage: 200 MCG/25 MCG
     Route: 055
     Dates: start: 20160311
  45. PHENERGAN [Concomitant]
     Active Substance: PROMETHAZINE HYDROCHLORIDE
     Indication: PRODUCT USED FOR UNKNOWN INDICATION
     Route: 048
     Dates: start: 20160424
  46. MAGNESIUM SULFATE. [Concomitant]
     Active Substance: MAGNESIUM SULFATE
     Indication: PRODUCT USED FOR UNKNOWN INDICATION
     Dosage: 40 MILLIEQUIVALENTS
     Route: 041
     Dates: start: 20160408, end: 20160408
  47. VANCOMYCIN [Concomitant]
     Active Substance: VANCOMYCIN
     Indication: PRODUCT USED FOR UNKNOWN INDICATION
     Dosage: 21 MILLIGRAM
     Route: 041
  48. ABRAXANE [Suspect]
     Active Substance: PACLITAXEL
     Dosage: 2 GRAM
     Route: 041
     Dates: start: 20160420, end: 20160427
  49. MPDL3280A (ATEZOLIZUMAB) [Suspect]
     Active Substance: ATEZOLIZUMAB
     Indication: NON-SMALL CELL LUNG CANCER
     Dosage: DOSAGE FORM 250 ML NACL 60MG/ML
     Route: 041
     Dates: start: 20160406, end: 20160427
  50. ZOFRAN [Concomitant]
     Active Substance: ONDANSETRON HYDROCHLORIDE
     Indication: NAUSEA
     Dosage: 1 MILLIGRAM
     Route: 048
     Dates: start: 201603
  51. DUONEB [Concomitant]
     Active Substance: ALBUTEROL SULFATE\IPRATROPIUM BROMIDE
     Indication: PRODUCT USED FOR UNKNOWN INDICATION
     Route: 055
  52. CODEINE [Concomitant]
     Active Substance: CODEINE
     Indication: NAUSEA
  53. CODEINE [Concomitant]
     Active Substance: CODEINE
     Indication: COUGH
  54. SODIUM CHLORIDE. [Concomitant]
     Active Substance: SODIUM CHLORIDE
     Indication: PRODUCT USED FOR UNKNOWN INDICATION
     Route: 041
     Dates: start: 20160424
  55. VITAMIN K1 [Concomitant]
     Active Substance: PHYTONADIONE
     Indication: PRODUCT USED FOR UNKNOWN INDICATION
     Dosage: 40 MILLIGRAM
     Route: 058

REACTIONS (2)
  - Hypoxia [Recovering/Resolving]
  - Dyspnoea [Recovering/Resolving]

NARRATIVE: CASE EVENT DATE: 20160421
